FAERS Safety Report 6142120-X (Version None)
Quarter: 2009Q2

REPORT INFORMATION
  Report Type: 
  Country: None (occurrence: None)
  Receive Date: 20090402
  Receipt Date: 20090323
  Transmission Date: 20091009
  Serious: Yes (Hospitalization)
  Sender: FDA-Public Use
  Company Number: US-ABBOTT-09P-163-0564198-00

PATIENT
  Sex: Male
  Weight: 113.5 kg

DRUGS (3)
  1. HUMIRA [Suspect]
     Indication: CROHN'S DISEASE
     Route: 058
     Dates: start: 20080820
  2. IMURAN [Concomitant]
     Indication: CROHN'S DISEASE
     Route: 048
  3. CELEXA [Concomitant]
     Indication: ANXIETY
     Route: 048

REACTIONS (8)
  - APPENDICITIS [None]
  - DIARRHOEA [None]
  - HEPATIC ENZYME INCREASED [None]
  - MALAISE [None]
  - NAUSEA [None]
  - THROAT IRRITATION [None]
  - VOMITING [None]
  - WHITE BLOOD CELL COUNT INCREASED [None]
